FAERS Safety Report 8499997-2 (Version None)
Quarter: 2012Q3

REPORT INFORMATION
  Report Type: 
  Country: None (occurrence: None)
  Receive Date: 20120710
  Receipt Date: 20120702
  Transmission Date: 20120928
  Serious: Yes (Other)
  Sender: FDA-Public Use
  Company Number: US-ASTRAZENECA-2011SE41513

PATIENT
  Age: 21228 Day
  Sex: Female

DRUGS (21)
  1. LOMOTIL [Concomitant]
     Dosage: 2.5-0.25 MG
     Dates: start: 20060210
  2. AMITRIPTYLINE HCL [Concomitant]
     Dates: start: 20060308
  3. TEQUIN [Concomitant]
     Dates: start: 20060227
  4. FIORICET [Concomitant]
     Dosage: 325-40-50
     Dates: start: 20060220
  5. METHOCARBAMOL [Concomitant]
     Dates: start: 20060216
  6. PRILOSEC [Suspect]
     Indication: GASTROOESOPHAGEAL REFLUX DISEASE
     Route: 065
     Dates: start: 19950101, end: 20100101
  7. CELEBREX [Concomitant]
     Dates: start: 20060201
  8. BIAXIN XL [Concomitant]
     Dates: start: 20060220
  9. CLONAZEPAM [Concomitant]
     Dates: start: 20060208
  10. VICODIN [Concomitant]
     Dosage: 10 MG-650 MG
     Dates: start: 20060203
  11. NADOLOL [Concomitant]
     Dates: start: 20060223
  12. ZYRTEC [Concomitant]
     Dates: start: 20060220
  13. CEPHALEXIN [Concomitant]
     Dates: start: 20060315
  14. DIFLUCAN [Concomitant]
     Dates: start: 20060208
  15. VICODIN [Concomitant]
     Dosage: 5MG-500MG
     Dates: start: 20060220
  16. RISPERDAL [Concomitant]
     Dates: start: 20060308
  17. OMACOR [Concomitant]
     Dates: start: 20060223
  18. METHYLPREDNISOLONE [Concomitant]
     Dates: start: 20060216
  19. NEXIUM [Suspect]
     Indication: GASTROOESOPHAGEAL REFLUX DISEASE
     Route: 048
     Dates: start: 19950101, end: 20100101
  20. NEXIUM [Suspect]
     Route: 048
     Dates: start: 20060207
  21. PREDNISONE TAB [Concomitant]
     Dates: start: 20060313

REACTIONS (6)
  - MENTAL DISORDER [None]
  - PAIN [None]
  - FOOT FRACTURE [None]
  - OSTEOPOROSIS [None]
  - PAIN IN EXTREMITY [None]
  - OSTEOPENIA [None]
